FAERS Safety Report 23267648 (Version 1)
Quarter: 2023Q4

REPORT INFORMATION
  Report Type: Spontaneous
  Country: CN (occurrence: CN)
  Receive Date: 20231206
  Receipt Date: 20231206
  Transmission Date: 20240110
  Serious: Yes (Hospitalization, Other)
  Sender: FDA-Public Use
  Company Number: CN-SA-2023SA369082

PATIENT
  Age: 54 Year
  Sex: Male

DRUGS (6)
  1. ANTI-THYMOCYTE GLOBULIN (RABBIT) NOS [Suspect]
     Active Substance: LAPINE T-LYMPHOCYTE IMMUNE GLOBULIN
     Indication: Immunosuppressant drug therapy
     Dosage: UNK
  2. PREDNISONE [Suspect]
     Active Substance: PREDNISONE
     Indication: Prophylaxis
     Dosage: UNK
     Route: 048
  3. CORTICOSTEROID NOS [Suspect]
     Active Substance: CORTICOSTEROID NOS
     Indication: Immunosuppressant drug therapy
     Dosage: UNK
  4. CYCLOSPORINE [Suspect]
     Active Substance: CYCLOSPORINE
     Indication: Prophylaxis
     Dosage: UNK
     Route: 048
  5. MYCOPHENOLATE MOFETIL [Suspect]
     Active Substance: MYCOPHENOLATE MOFETIL
     Indication: Prophylaxis
     Dosage: UNK
     Route: 048
  6. MEROPENEM [Concomitant]
     Active Substance: MEROPENEM
     Indication: Anti-infective therapy
     Dosage: UNK

REACTIONS (18)
  - Pneumoperitoneum [Recovered/Resolved]
  - Flatulence [Recovered/Resolved]
  - Abscess intestinal [Recovered/Resolved]
  - Intestinal congestion [Recovered/Resolved]
  - Gastrointestinal oedema [Recovered/Resolved]
  - Pyrexia [Recovered/Resolved]
  - Appendicitis noninfective [Recovered/Resolved]
  - Inflammation [Recovered/Resolved]
  - Hyperplasia [Recovered/Resolved]
  - Abdominal infection [Recovered/Resolved]
  - Faeces discoloured [Recovered/Resolved]
  - Abdominal pain [Recovered/Resolved]
  - Abdominal distension [Recovered/Resolved]
  - Bacteroides infection [Recovered/Resolved]
  - Enterococcal infection [Recovered/Resolved]
  - Bifidobacterium infection [Recovered/Resolved]
  - Proteus infection [Recovered/Resolved]
  - Bacterial infection [Recovered/Resolved]
